FAERS Safety Report 6635394-X (Version None)
Quarter: 2010Q1

REPORT INFORMATION
  Report Type: 
  Country: None (occurrence: None)
  Receive Date: 20100315
  Receipt Date: 20090505
  Transmission Date: 20100710
  Serious: No
  Sender: FDA-Public Use
  Company Number: US-ABBOTT-09P-163-0571733-00

PATIENT
  Sex: Female
  Weight: 75.818 kg

DRUGS (7)
  1. DEPAKOTE [Suspect]
     Indication: EPILEPSY
     Route: 048
     Dates: start: 20061101, end: 20090401
  2. DEPAKOTE [Suspect]
     Dosage: DEPAKOTE ER
     Route: 048
     Dates: start: 20090401
  3. ZOLOFT [Suspect]
     Indication: DEPRESSION
     Route: 048
     Dates: start: 20090401
  4. ZOLOFT [Suspect]
     Route: 048
     Dates: start: 20090401, end: 20090401
  5. ZOLOFT [Suspect]
     Route: 048
     Dates: start: 20090401, end: 20090401
  6. ZYRTEC [Concomitant]
     Indication: DRUG USE FOR UNKNOWN INDICATION
  7. VITAMIN C [Concomitant]
     Indication: DRUG USE FOR UNKNOWN INDICATION

REACTIONS (4)
  - CELLULITIS [None]
  - ERYTHEMA [None]
  - FEELING ABNORMAL [None]
  - SWELLING FACE [None]
